FAERS Safety Report 7575495-5 (Version None)
Quarter: 2011Q2

REPORT INFORMATION
  Report Type: 
  Country: None (occurrence: None)
  Receive Date: 20110627
  Receipt Date: 20110616
  Transmission Date: 20111010
  Serious: Yes (Hospitalization)
  Sender: FDA-Public Use
  Company Number: PHHY2011GB54232

PATIENT
  Age: 42 Year
  Sex: Female

DRUGS (2)
  1. WARFARIN SODIUM [Suspect]
     Indication: DEEP VEIN THROMBOSIS
  2. ORAL CONTRACEPTIVE NOS [Suspect]

REACTIONS (2)
  - VAGINAL HAEMORRHAGE [None]
  - UTERINE LEIOMYOMA [None]
